FAERS Safety Report 10247574 (Version 1)
Quarter: 2014Q2

REPORT INFORMATION
  Report Type: Report from Study
  Country: CA (occurrence: None)
  Receive Date: 20140617
  Receipt Date: 20140617
  Transmission Date: 20141212
  Serious: Yes (Other)
  Sender: FDA-Public Use
  Company Number: CA-016011

PATIENT
  Age: 91 Year
  Sex: Male

DRUGS (2)
  1. FIRMAGON /01764801/  (FIRMAGON) 80 MG  (NOT SPECIFIED) [Suspect]
     Indication: PROSTATE CANCER
     Dosage: 1X/MONTH
     Route: 058
     Dates: start: 20131113
  2. CRESTOR [Concomitant]

REACTIONS (2)
  - Unevaluable event [None]
  - Photon radiation therapy to prostate [None]
